FAERS Safety Report 5914786-8 (Version None)
Quarter: 2008Q4

REPORT INFORMATION
  Report Type: 
  Country: None (occurrence: None)
  Receive Date: 20081010
  Receipt Date: 20080930
  Transmission Date: 20090506
  Serious: Yes (Other)
  Sender: FDA-Public Use
  Company Number: US-ROCHE-588952

PATIENT
  Sex: Female

DRUGS (9)
  1. BONIVA [Suspect]
     Indication: OSTEOPOROSIS
     Route: 065
     Dates: start: 20070801, end: 20080801
  2. COMBIVENT [Concomitant]
  3. CELEXA [Concomitant]
  4. ADVAIR DISKUS 100/50 [Concomitant]
  5. SINGULAIR [Concomitant]
  6. CALCIUM [Concomitant]
  7. VITAMINE D [Concomitant]
  8. LEVOXYL [Concomitant]
  9. OSTEO BIFLEX [Concomitant]

REACTIONS (6)
  - ABASIA [None]
  - FACET JOINT SYNDROME [None]
  - FALL [None]
  - INTERVERTEBRAL DISC DEGENERATION [None]
  - OSTEOPOROSIS [None]
  - PAIN [None]
